FAERS Safety Report 8856935 (Version 1)
Quarter: 2012Q4

REPORT INFORMATION
  Report Type: 
  Country: US (occurrence: US)
  Receive Date: 20121023
  Receipt Date: 20121023
  Transmission Date: 20130627
  Serious: No
  Sender: FDA-Public Use
  Company Number: US-AMGEN-USASP2012055579

PATIENT
  Age: 70 Year
  Sex: Female

DRUGS (2)
  1. ENBREL [Suspect]
     Indication: RHEUMATOID ARTHRITIS
     Dosage: UNK
     Route: 058
     Dates: start: 19990101
  2. TOPAMAX [Concomitant]
     Dosage: UNK

REACTIONS (4)
  - Asthenia [Not Recovered/Not Resolved]
  - Angina pectoris [Not Recovered/Not Resolved]
  - Balance disorder [Not Recovered/Not Resolved]
  - Thirst [Not Recovered/Not Resolved]
